FAERS Safety Report 12718363 (Version 1)
Quarter: 2016Q3

REPORT INFORMATION
  Report Type: Spontaneous
  Country: FR (occurrence: FR)
  Receive Date: 20160906
  Receipt Date: 20160906
  Transmission Date: 20161109
  Serious: Yes (Hospitalization)
  Sender: FDA-Public Use
  Company Number: FR-TEVA-688522ROM

PATIENT
  Sex: Female

DRUGS (7)
  1. QVAR [Suspect]
     Active Substance: BECLOMETHASONE DIPROPIONATE
     Route: 055
  2. PRIMALAN 5 MG [Concomitant]
     Dosage: FORM OF ADMINISTRATION: SCORED TABLET
  3. PARACETAMOL [Concomitant]
     Active Substance: ACETAMINOPHEN
  4. ALVESCO [Suspect]
     Active Substance: CICLESONIDE
     Dosage: 1 INHALATION IN THE MORNING
     Route: 055
  5. LERCAN 10 MG [Concomitant]
  6. KARDEGIC [Suspect]
     Active Substance: ASPIRIN LYSINE
     Indication: CAROTID ARTERIOSCLEROSIS
     Dosage: 1 DOSAGE FORMS DAILY; 1 DOSE PER DAY IN THE MORNING
     Route: 048
     Dates: start: 2008, end: 20160816
  7. LAMICTAL [Concomitant]
     Active Substance: LAMOTRIGINE

REACTIONS (1)
  - Spontaneous haematoma [Recovered/Resolved]

NARRATIVE: CASE EVENT DATE: 2016
